FAERS Safety Report 17325764 (Version 1)
Quarter: 2020Q1

REPORT INFORMATION
  Report Type: Spontaneous
  Country: US (occurrence: US)
  Receive Date: 20200106
  Receipt Date: 20200106
  Transmission Date: 20200409
  Serious: No
  Sender: FDA-Public Use
  Company Number: None

PATIENT
  Age: 40 Year
  Weight: 53.52 kg

DRUGS (1)
  1. U-DREAM LITE HERBAL SUPPLEMENT [Suspect]
     Active Substance: HERBALS
     Indication: SLEEP DISORDER
     Route: 048
     Dates: start: 20191130, end: 20200105

REACTIONS (16)
  - Mood altered [None]
  - Thinking abnormal [None]
  - Fatigue [None]
  - Product quality issue [None]
  - Product tampering [None]
  - Anxiety [None]
  - Depression [None]
  - Irritability [None]
  - Neurological symptom [None]
  - Trigeminal neuralgia [None]
  - Memory impairment [None]
  - Product contamination chemical [None]
  - Pain [None]
  - Product label issue [None]
  - Quality of life decreased [None]
  - Impaired work ability [None]

NARRATIVE: CASE EVENT DATE: 20191130
